FAERS Safety Report 5848405-6 (Version None)
Quarter: 2008Q3

REPORT INFORMATION
  Report Type: 
  Country: None (occurrence: None)
  Receive Date: 20080814
  Receipt Date: 20080730
  Transmission Date: 20090109
  Serious: Yes (Life-Threatening, Hospitalization)
  Sender: FDA-Public Use
  Company Number: DSM-2008-00695

PATIENT
  Age: 53 Year
  Sex: Male

DRUGS (6)
  1. OLMESARTAN MEDOXOMIL [Suspect]
     Indication: HYPERTENSION
     Dosage: 10 MG (10 MG, 1 IN 1 D), ORAL
     Route: 048
     Dates: end: 20080704
  2. METFORMIN HCL [Suspect]
     Indication: TYPE 2 DIABETES MELLITUS
     Dosage: 3 IN 1 D, ORAL
     Route: 048
     Dates: end: 20080704
  3. IRBESARTAN [Concomitant]
  4. FUROSEMIDE [Concomitant]
  5. ATORVASTATIN CALCIUM [Concomitant]
  6. CARDENSIL (BISOPROLOL) [Concomitant]

REACTIONS (5)
  - DRUG LEVEL ABOVE THERAPEUTIC [None]
  - HAEMODIALYSIS [None]
  - HYPERKALAEMIA [None]
  - LACTIC ACIDOSIS [None]
  - MULTI-ORGAN FAILURE [None]
